FAERS Safety Report 9084498 (Version 1)
Quarter: 2013Q1

REPORT INFORMATION
  Report Type: Report from Study
  Country: US (occurrence: US)
  Receive Date: 20130131
  Receipt Date: 20130131
  Transmission Date: 20140127
  Serious: No
  Sender: FDA-Public Use
  Company Number: US-ABBOTT-12P-163-0996235-00

PATIENT
  Age: 45 Year
  Sex: Male
  Weight: 95.34 kg

DRUGS (11)
  1. HUMIRA [Suspect]
     Indication: RHEUMATOID ARTHRITIS
     Route: 058
     Dates: start: 20120924
  2. BABY ASPIRIN [Concomitant]
     Indication: CARDIOVASCULAR EVENT PROPHYLAXIS
  3. DICLOFENAC [Concomitant]
     Indication: PAIN
  4. FOLIC ACID [Concomitant]
     Indication: VITAMIN SUPPLEMENTATION
  5. LORTAB [Concomitant]
     Indication: PAIN
  6. LEXAPRO [Concomitant]
     Indication: DEPRESSION
  7. METHOTREXATE [Concomitant]
     Indication: RHEUMATOID ARTHRITIS
  8. OXYCODONE [Concomitant]
     Indication: PAIN
  9. SIMVASTATIN [Concomitant]
     Indication: BLOOD CHOLESTEROL INCREASED
  10. TOPROL [Concomitant]
     Indication: HYPERTENSION
  11. STOOL SOFTENER [Concomitant]
     Indication: CONSTIPATION

REACTIONS (2)
  - Joint swelling [Recovered/Resolved]
  - Diarrhoea [Recovered/Resolved]
